FAERS Safety Report 11391729 (Version 1)
Quarter: 2015Q3

REPORT INFORMATION
  Report Type: Spontaneous
  Country: US (occurrence: None)
  Receive Date: 20150814
  Receipt Date: 20150814
  Transmission Date: 20151125
  Serious: Yes (Disabling)
  Sender: FDA-Public Use
  Company Number: None

PATIENT
  Age: 58 Year
  Sex: Male
  Weight: 87.54 kg

DRUGS (21)
  1. MAGNESIUM CITRATE. [Concomitant]
     Active Substance: MAGNESIUM CITRATE
  2. DOCUSATE SODIUM STOOL SOFTENER [Concomitant]
     Active Substance: DOCUSATE SODIUM
  3. PRO-IMMUNE HYPERBIIOTICS [Concomitant]
  4. MIRAL-LAX [Concomitant]
  5. TOCOPHEROLS [Concomitant]
  6. LINZESS [Concomitant]
     Active Substance: LINACLOTIDE
  7. PRAVASTATIN [Concomitant]
     Active Substance: PRAVASTATIN\PRAVASTATIN SODIUM
  8. HYPERBIOTICS [Concomitant]
  9. TRIUMEQ [Concomitant]
     Active Substance: ABACAVIR SULFATE\DOLUTEGRAVIR SODIUM\LAMIVUDINE
  10. DIGESTIVE SYSTEM ENZYMES [Concomitant]
  11. PROBIOTICS [Concomitant]
     Active Substance: PROBIOTICS NOS
  12. FLAX OIL [Concomitant]
  13. VITAMIN D K3 [Concomitant]
  14. ASPIRIN. [Concomitant]
     Active Substance: ASPIRIN
  15. VITAMIN E [Concomitant]
     Active Substance: .ALPHA.-TOCOPHEROL
  16. CITRUCEL [Concomitant]
     Active Substance: METHYLCELLULOSE (4000 MPA.S)
  17. FISH OIL [Concomitant]
     Active Substance: FISH OIL
  18. BENEFIBER [Concomitant]
     Active Substance: STARCH, WHEAT
  19. TRIUMEQ [Suspect]
     Active Substance: ABACAVIR SULFATE\DOLUTEGRAVIR SODIUM\LAMIVUDINE
     Indication: HIV INFECTION
     Route: 048
     Dates: start: 20140801, end: 20150813
  20. OMEGA 3 6 9 [Concomitant]
     Active Substance: FISH OIL
  21. TRIPHALA AYURVEDIC [Concomitant]

REACTIONS (4)
  - No therapeutic response [None]
  - Abdominal pain [None]
  - Constipation [None]
  - Faecaloma [None]

NARRATIVE: CASE EVENT DATE: 20140901
